FAERS Safety Report 21657155 (Version 1)
Quarter: 2022Q4

REPORT INFORMATION
  Report Type: Spontaneous
  Country: US (occurrence: US)
  Receive Date: 20221129
  Receipt Date: 20221129
  Transmission Date: 20230113
  Serious: Yes (Hospitalization)
  Sender: FDA-Public Use
  Company Number: US-MYLANLABS-2022M1133648

PATIENT
  Age: 14 Year
  Sex: Female

DRUGS (1)
  1. VALACYCLOVIR HYDROCHLORIDE [Suspect]
     Active Substance: VALACYCLOVIR HYDROCHLORIDE
     Indication: Necrotising retinitis
     Dosage: 500 MILLIGRAM, Q8H (THRICE A DAY)
     Route: 048

REACTIONS (2)
  - Treatment noncompliance [Unknown]
  - Off label use [Unknown]
